FAERS Safety Report 22594806 (Version 1)
Quarter: 2023Q2

REPORT INFORMATION
  Report Type: Spontaneous
  Country: US (occurrence: None)
  Receive Date: 20230612
  Receipt Date: 20230612
  Transmission Date: 20230722
  Serious: Yes (Hospitalization)
  Sender: FDA-Public Use
  Company Number: None

PATIENT
  Age: 67 Year
  Sex: Female
  Weight: 53.2 kg

DRUGS (16)
  1. FARXIGA [Suspect]
     Active Substance: DAPAGLIFLOZIN PROPANEDIOL
     Indication: Diabetes mellitus
     Dosage: FREQUENCY : DAILY;?
     Dates: start: 20210223
  2. ALENDRONATE [Concomitant]
     Active Substance: ALENDRONATE SODIUM
  3. AMLODIPINE [Concomitant]
     Active Substance: AMLODIPINE BESYLATE
  4. ATORVASTATIN [Concomitant]
     Active Substance: ATORVASTATIN
  5. CARVEDILOL [Concomitant]
     Active Substance: CARVEDILOL
  6. DULOXETINE [Concomitant]
     Active Substance: DULOXETINE
  7. FENOFIBRATE [Concomitant]
     Active Substance: FENOFIBRATE
  8. GABAPENTIN [Concomitant]
     Active Substance: GABAPENTIN
  9. INSULIN GLARGINE [Concomitant]
     Active Substance: INSULIN GLARGINE
  10. ISOSORBIDE [Concomitant]
     Active Substance: ISOSORBIDE
  11. LISINOPRIL [Concomitant]
     Active Substance: LISINOPRIL
  12. METFORMIN [Concomitant]
     Active Substance: METFORMIN HYDROCHLORIDE
  13. OMEPRAZOLE [Concomitant]
     Active Substance: OMEPRAZOLE
  14. XARELTO [Concomitant]
     Active Substance: RIVAROXABAN
  15. SOLIFENACIN [Concomitant]
     Active Substance: SOLIFENACIN
  16. TRAZODONE [Concomitant]
     Active Substance: TRAZODONE HYDROCHLORIDE

REACTIONS (1)
  - Diabetic ketoacidosis [None]

NARRATIVE: CASE EVENT DATE: 20230607
